FAERS Safety Report 7168474-3 (Version None)
Quarter: 2010Q4

REPORT INFORMATION
  Report Type: 
  Country: None (occurrence: None)
  Receive Date: 20101216
  Receipt Date: 20100107
  Transmission Date: 20110411
  Serious: No
  Sender: FDA-Public Use
  Company Number: US-AMGEN-KDL384338

PATIENT

DRUGS (7)
  1. ENBREL [Suspect]
     Indication: PRODUCT USED FOR UNKNOWN INDICATION
     Dosage: 50 MG, QWK
     Route: 058
  2. CALCIUM CARBONATE [Concomitant]
     Dosage: UNK UNK, UNK
  3. PREDNISONE [Concomitant]
     Dosage: 2.5 MG, UNK
  4. IBUPROFEN [Concomitant]
     Dosage: 200 MG, UNK
  5. VITAMIN B COMPLEX [Concomitant]
     Dosage: UNK UNK, UNK
  6. SULFASALAZINE [Concomitant]
     Dosage: 500 MG, UNK
  7. CODEINE [Concomitant]
     Dosage: UNK UNK, UNK

REACTIONS (3)
  - CHAPPED LIPS [None]
  - GLOSSITIS [None]
  - TONGUE DISORDER [None]
